FAERS Safety Report 6655690-X (Version None)
Quarter: 2010Q1

REPORT INFORMATION
  Report Type: 
  Country: None (occurrence: None)
  Receive Date: 20100326
  Receipt Date: 20100326
  Transmission Date: 20100710
  Serious: Yes (Other)
  Sender: FDA-Public Use
  Company Number: None

PATIENT
  Age: 56 Year
  Sex: Male
  Weight: 90.7194 kg

DRUGS (1)
  1. KAPIDEX [Suspect]
     Indication: REFLUX OESOPHAGITIS
     Dosage: 60 MG. QD ORAL
     Route: 048
     Dates: start: 20091231, end: 20100309

REACTIONS (1)
  - BRADYCARDIA [None]
